FAERS Safety Report 7392949-5 (Version None)
Quarter: 2011Q2

REPORT INFORMATION
  Report Type: 
  Country: None (occurrence: None)
  Receive Date: 20110404
  Receipt Date: 20110324
  Transmission Date: 20111010
  Serious: Yes (Hospitalization, Other)
  Sender: FDA-Public Use
  Company Number: FR-PFIZER INC-FR-WYE-H14040610

PATIENT
  Age: 68 Year
  Sex: Female
  Weight: 59 kg

DRUGS (9)
  1. PROTELOS [Suspect]
     Indication: OSTEOPOROSIS
     Dosage: 1 DF, 1X/DAY
     Route: 048
     Dates: start: 20070723
  2. PREDNISONE [Concomitant]
     Indication: TEMPORAL ARTERITIS
     Dosage: 5 MG, UNK
     Route: 048
     Dates: start: 20070301
  3. DUPHALAC [Concomitant]
     Dosage: 1 DF, UNK
     Route: 048
  4. INIPOMP [Suspect]
     Indication: GASTRIC ULCER
     Dosage: 20 MG, 1X/DAY
     Route: 048
     Dates: start: 20070201, end: 20100204
  5. LASIX [Suspect]
     Indication: HYPERTENSION
     Dosage: 80 MG, DAILY
     Route: 048
  6. ALLOPURINOL [Suspect]
     Dosage: 200 MG, 1X/DAY
     Route: 048
     Dates: start: 20070101, end: 20100104
  7. VERAPAMIL [Concomitant]
     Dosage: 2 DF, UNK
     Route: 048
  8. CRESTOR [Suspect]
     Indication: HYPERCHOLESTEROLAEMIA
     Dosage: 5 MG, 1X/DAY
     Route: 048
     Dates: start: 20070917, end: 20100204
  9. DIFFU K [Concomitant]
     Dosage: 2 DF, UNK
     Route: 048

REACTIONS (21)
  - INFLAMMATION [None]
  - ORGANISING PNEUMONIA [None]
  - BRONCHOPULMONARY ASPERGILLOSIS ALLERGIC [None]
  - ALLERGIC GRANULOMATOUS ANGIITIS [None]
  - RENAL FAILURE CHRONIC [None]
  - GENERAL PHYSICAL HEALTH DETERIORATION [None]
  - BRONCHIAL DISORDER [None]
  - MUSCULAR DYSTROPHY [None]
  - LIPOMATOSIS [None]
  - BRONCHIAL OBSTRUCTION [None]
  - CONDITION AGGRAVATED [None]
  - DYSPNOEA [None]
  - MYALGIA [None]
  - SICCA SYNDROME [None]
  - LIPODYSTROPHY ACQUIRED [None]
  - BLOOD CREATINE PHOSPHOKINASE INCREASED [None]
  - ACUTE RESPIRATORY DISTRESS SYNDROME [None]
  - AXONAL NEUROPATHY [None]
  - WEIGHT DECREASED [None]
  - HYPOGAMMAGLOBULINAEMIA [None]
  - INFECTION [None]
